FAERS Safety Report 16727041 (Version 1)
Quarter: 2019Q3

REPORT INFORMATION
  Report Type: Spontaneous
  Country: SE (occurrence: SE)
  Receive Date: 20190821
  Receipt Date: 20190821
  Transmission Date: 20191005
  Serious: Yes (Other)
  Sender: FDA-Public Use
  Company Number: PHHY2019SE192274

PATIENT
  Sex: Male
  Weight: 83 kg

DRUGS (4)
  1. PENICILLIN [Concomitant]
     Active Substance: PENICILLIN
     Indication: LIMB INJURY
     Dosage: 500 MG, (3 X 500 MILLIGRAM PER DAY)
     Route: 065
  2. METOPROLOL. [Suspect]
     Active Substance: METOPROLOL
     Indication: ATRIAL FIBRILLATION
     Dosage: 50 MG, QD
     Route: 065
  3. ELIQUIS [Suspect]
     Active Substance: APIXABAN
     Indication: CEREBROVASCULAR ACCIDENT PROPHYLAXIS
     Dosage: 10 MG, QD (5 MILLIGRAM, BID)
     Route: 048
     Dates: start: 2018
  4. PENICILLIN [Concomitant]
     Active Substance: PENICILLIN
     Indication: OSTEITIS

REACTIONS (4)
  - Gait disturbance [Unknown]
  - Eye haemorrhage [Unknown]
  - Vision blurred [Unknown]
  - Visual impairment [Unknown]
